FAERS Safety Report 8691848 (Version 2)
Quarter: 2012Q4

REPORT INFORMATION
  Report Type: 
  Country: US (occurrence: US)
  Receive Date: 20120730
  Receipt Date: 20121017
  Transmission Date: 20130627
  Serious: Yes (Other)
  Sender: FDA-Public Use
  Company Number: US-ROCHE-1092951

PATIENT
  Sex: Female

DRUGS (8)
  1. XOLAIR [Suspect]
     Indication: ASTHMA
     Route: 050
     Dates: start: 2004
  2. XOLAIR [Suspect]
     Indication: RHINITIS SEASONAL
  3. PREDNISONE [Concomitant]
     Route: 065
     Dates: start: 20071128
  4. BIAXIN (UNITED STATES) [Concomitant]
     Route: 065
     Dates: start: 20071128
  5. ASTHALIN [Concomitant]
     Route: 065
     Dates: start: 20071130
  6. ADVAIR [Concomitant]
     Dosage: 500/50
     Route: 065
     Dates: start: 20071130
  7. XYZAL [Concomitant]
     Route: 065
     Dates: start: 20071213
  8. SINGULAIR [Concomitant]
     Route: 065
     Dates: start: 20071213

REACTIONS (4)
  - Sinusitis [Unknown]
  - Hypersensitivity [Unknown]
  - Ear infection [Unknown]
  - Asthma [Unknown]
